FAERS Safety Report 5594660-X (Version None)
Quarter: 2008Q1

REPORT INFORMATION
  Report Type: 
  Country: None (occurrence: None)
  Receive Date: 20080117
  Receipt Date: 20080110
  Transmission Date: 20080703
  Serious: Yes (Hospitalization)
  Sender: FDA-Public Use
  Company Number: DEWYE236026NOV04

PATIENT
  Sex: Male
  Weight: 111.1 kg

DRUGS (10)
  1. SIROLIMUS [Suspect]
     Indication: PROPHYLAXIS AGAINST TRANSPLANT REJECTION
     Dosage: 5 MG PER DAY
     Route: 048
     Dates: start: 20041027, end: 20041117
  2. PANTOZOL [Concomitant]
     Indication: PROPHYLAXIS AGAINST GASTROINTESTINAL ULCER
     Dosage: 40 MG
     Route: 048
     Dates: start: 20041027
  3. AMPHO-MORONAL [Concomitant]
     Dosage: 6 ML
     Route: 048
  4. UNSPECIFIED ANTIHYPERTENSIVE AGENT [Concomitant]
     Indication: HYPERTENSION
     Dosage: UNKNOWN
     Dates: start: 20041027
  5. NEPHROTRANS [Concomitant]
     Dosage: UNKNOWN
     Dates: start: 20041027
  6. CALCIUM GLUCONATE [Concomitant]
     Dosage: 1.5 G
     Route: 048
     Dates: start: 20041027
  7. KEPINOL [Concomitant]
     Indication: ANTIFUNGAL PROPHYLAXIS
     Dosage: 480 MG
     Route: 048
     Dates: start: 20041027
  8. HEPARIN [Concomitant]
     Indication: THROMBOSIS PROPHYLAXIS
     Dosage: 15000 IU/24 H
  9. MYCOPHENOLATE MOFETIL [Concomitant]
     Indication: PROPHYLAXIS AGAINST TRANSPLANT REJECTION
     Dosage: 2000 MG
     Route: 048
     Dates: start: 20041027
  10. MUCOSOLVAN [Concomitant]
     Dosage: UNKNOWN
     Dates: start: 20041027

REACTIONS (1)
  - KIDNEY TRANSPLANT REJECTION [None]
